FAERS Safety Report 10282714 (Version 3)
Quarter: 2014Q3

REPORT INFORMATION
  Report Type: Spontaneous
  Country: JP (occurrence: JP)
  Receive Date: 20140708
  Receipt Date: 20140911
  Transmission Date: 20150326
  Serious: Yes (Other)
  Sender: FDA-Public Use
  Company Number: JP-009507513-1407JPN002638

PATIENT
  Age: 59 Year
  Sex: Male
  Weight: 78 kg

DRUGS (4)
  1. PEGINTRON [Suspect]
     Active Substance: PEGINTERFERON ALFA-2B
     Indication: CHRONIC HEPATITIS C
     Dosage: 120 MICROGRAM, QW
     Route: 058
     Dates: start: 20140109, end: 20140320
  2. REBETOL [Suspect]
     Active Substance: RIBAVIRIN
     Dosage: 200 MG, HS
     Route: 048
     Dates: start: 20140320, end: 20140327
  3. REBETOL [Suspect]
     Active Substance: RIBAVIRIN
     Indication: CHRONIC HEPATITIS C
     Dosage: 400 MG, BID
     Route: 048
     Dates: start: 20140109, end: 20140319
  4. REBETOL [Suspect]
     Active Substance: RIBAVIRIN
     Dosage: 400 MG, QAM
     Route: 048
     Dates: start: 20140320, end: 20140327

REACTIONS (1)
  - Interstitial lung disease [Recovered/Resolved]

NARRATIVE: CASE EVENT DATE: 20140320
